FAERS Safety Report 10102474 (Version 1)
Quarter: 2014Q2

REPORT INFORMATION
  Report Type: Spontaneous
  Country: ES (occurrence: ES)
  Receive Date: 20140424
  Receipt Date: 20140424
  Transmission Date: 20141212
  Serious: Yes (Other)
  Sender: FDA-Public Use
  Company Number: ES-WATSON-2014-07850

PATIENT
  Age: 69 Year
  Sex: Female

DRUGS (18)
  1. PREDNISONE (UNKNOWN) [Suspect]
     Indication: DERMATOMYOSITIS
     Dosage: 60 MG, DAILY
     Route: 065
  2. PREDNISONE (UNKNOWN) [Suspect]
     Indication: INTERSTITIAL LUNG DISEASE
     Dosage: 55 MG, DAILY
     Route: 065
  3. PREDNISONE (UNKNOWN) [Suspect]
     Dosage: 50 MG, DAILY
     Route: 065
  4. PREDNISONE (UNKNOWN) [Suspect]
     Dosage: 45 MG, DAILY
     Route: 065
  5. PREDNISONE (UNKNOWN) [Suspect]
     Dosage: 40 MG, DAILY
     Route: 065
  6. PREDNISONE (UNKNOWN) [Suspect]
     Dosage: 35 MG, DAILY
     Route: 065
  7. PREDNISONE (UNKNOWN) [Suspect]
     Dosage: 30 MG, DAILY
     Route: 065
  8. PREDNISONE (UNKNOWN) [Suspect]
     Dosage: 25 MG, DAILY
     Route: 065
  9. PREDNISONE (UNKNOWN) [Suspect]
     Dosage: 20 MG, DAILY
     Route: 065
  10. PREDNISONE (UNKNOWN) [Suspect]
     Dosage: 17.5 MG, DAILY
     Route: 065
  11. PREDNISONE (UNKNOWN) [Suspect]
     Dosage: 15 MG, DAILY
     Route: 065
  12. PREDNISONE (UNKNOWN) [Suspect]
     Dosage: 12.5 MG, DAILY
     Route: 065
  13. PREDNISONE (UNKNOWN) [Suspect]
     Dosage: 5-10 MG DAILY; MAINTENANCE DOSE
     Route: 065
  14. AZATHIOPRINE [Concomitant]
     Indication: DERMATOMYOSITIS
     Dosage: UNK
     Route: 065
  15. AZATHIOPRINE [Concomitant]
     Indication: INTERSTITIAL LUNG DISEASE
  16. ALENDRONATE [Concomitant]
     Indication: OSTEOPOROSIS
     Dosage: 70 MG, 1/WEEK
     Route: 065
  17. CALCIUM [Concomitant]
     Indication: OSTEOPOROSIS
     Dosage: 1000 MG, DAILY
     Route: 065
  18. VITAMIN D NOS [Concomitant]
     Indication: OSTEOPOROSIS
     Dosage: 400 U,DAILY
     Route: 065

REACTIONS (1)
  - Osteonecrosis [Unknown]
